FAERS Safety Report 15195722 (Version 2)
Quarter: 2018Q3

REPORT INFORMATION
  Report Type: Report from Study
  Country: GR (occurrence: GR)
  Receive Date: 20180725
  Receipt Date: 20180801
  Transmission Date: 20181010
  Serious: Yes (Hospitalization)
  Sender: FDA-Public Use
  Company Number: GR-PFIZER INC-2018285703

PATIENT
  Age: 66 Year
  Sex: Male
  Weight: 70 kg

DRUGS (7)
  1. CARBOPLATIN. [Suspect]
     Active Substance: CARBOPLATIN
     Indication: NON-SMALL CELL LUNG CANCER
     Dosage: AUC5 (140 MG), ONCE PER DAY EVERY 21 DAYS
     Route: 042
     Dates: start: 20180619, end: 20180619
  2. AVELUMAB [Suspect]
     Active Substance: AVELUMAB
     Dosage: UNK
  3. AVELUMAB [Suspect]
     Active Substance: AVELUMAB
     Indication: NON-SMALL CELL LUNG CANCER
     Dosage: 700 MG, WEEKLY
     Route: 042
     Dates: start: 20180517
  4. AVELUMAB [Suspect]
     Active Substance: AVELUMAB
     Dosage: UNK
     Dates: end: 20180605
  5. ALIMTA [Suspect]
     Active Substance: PEMETREXED DISODIUM
     Indication: NON-SMALL CELL LUNG CANCER
     Dosage: 500/M2 (900 MG) ONCE PER DAY EVERY 21 DAYS
     Route: 042
     Dates: start: 20180619, end: 20180619
  6. BEVACIZUMAB. [Suspect]
     Active Substance: BEVACIZUMAB
     Indication: NON-SMALL CELL LUNG CANCER
     Dosage: 15 MG/KG, ONCE PER DAY EVERY 21 DAYS
     Route: 042
     Dates: start: 20180619, end: 20180619
  7. AVELUMAB [Suspect]
     Active Substance: AVELUMAB
     Dosage: UNK

REACTIONS (1)
  - Haemoptysis [Recovered/Resolved]

NARRATIVE: CASE EVENT DATE: 20180703
